FAERS Safety Report 8949468 (Version 3)
Quarter: 2012Q4

REPORT INFORMATION
  Report Type: 
  Country: JP (occurrence: JP)
  Receive Date: 20121206
  Receipt Date: 20121221
  Transmission Date: 20130627
  Serious: Yes (Hospitalization, Other)
  Sender: FDA-Public Use
  Company Number: JP-PFIZER INC-2012306373

PATIENT
  Age: 83 Year
  Sex: Male
  Weight: 72 kg

DRUGS (11)
  1. CELECOX [Suspect]
     Indication: SPINAL COMPRESSION FRACTURE
     Dosage: 100 mg, 2x/day
     Route: 048
     Dates: start: 20120901, end: 20121117
  2. CELECOX [Suspect]
     Indication: LUMBAR SPINAL STENOSIS
  3. CELECOX [Suspect]
     Indication: BACK PAIN
  4. OPALMON [Concomitant]
     Indication: LUMBAR SPINAL STENOSIS
     Dosage: UNK
     Dates: start: 20120901
  5. MUCOSTA [Concomitant]
     Indication: SPINAL COMPRESSION FRACTURE
     Dosage: UNK
     Route: 048
     Dates: start: 20120901
  6. MUCOSTA [Concomitant]
     Indication: LUMBAR SPINAL STENOSIS
  7. MUCOSTA [Concomitant]
     Indication: BACK PAIN
  8. NU LOTAN [Concomitant]
     Indication: HYPERTENSION
     Dosage: UNK
  9. TENORMIN [Concomitant]
     Indication: HYPERTENSION
     Dosage: UNK
  10. AMLODIPINE [Concomitant]
     Indication: HYPERTENSION
     Dosage: UNK
     Dates: start: 20120905
  11. OLMETEC [Concomitant]
     Indication: HYPERTENSION
     Dosage: UNK
     Dates: start: 20121010, end: 20121010

REACTIONS (2)
  - Urinary retention [Unknown]
  - Urethral stenosis [Unknown]
